FAERS Safety Report 10641471 (Version 2)
Quarter: 2014Q4

REPORT INFORMATION
  Report Type: Report from Study
  Country: DE (occurrence: DE)
  Receive Date: 20141209
  Receipt Date: 20141215
  Transmission Date: 20150529
  Serious: Yes (Hospitalization, Other)
  Sender: FDA-Public Use
  Company Number: DE-BAYER-2014-176807

PATIENT
  Age: 64 Year
  Sex: Female

DRUGS (1)
  1. BETAFERON [Suspect]
     Active Substance: INTERFERON BETA-1B
     Indication: MULTIPLE SCLEROSIS
     Dosage: 250 ?G, QOD
     Route: 058
     Dates: start: 20000101

REACTIONS (4)
  - Injection site reaction [Not Recovered/Not Resolved]
  - Multiple sclerosis [None]
  - Injection site necrosis [Not Recovered/Not Resolved]
  - Injection site induration [Not Recovered/Not Resolved]
